FAERS Safety Report 7331752-9 (Version None)
Quarter: 2011Q1

REPORT INFORMATION
  Report Type: 
  Country: None (occurrence: None)
  Receive Date: 20110304
  Receipt Date: 20110225
  Transmission Date: 20110831
  Serious: Yes (Other)
  Sender: FDA-Public Use
  Company Number: US-AMGEN-QUU433963

PATIENT
  Age: 76 Year
  Sex: Male

DRUGS (3)
  1. NPLATE [Suspect]
     Indication: IDIOPATHIC THROMBOCYTOPENIC PURPURA
     Dosage: 250 A?G, UNK
     Dates: start: 20090318, end: 20090506
  2. RITUXIMAB [Concomitant]
  3. UNSPECIFIED MEDICATION [Concomitant]

REACTIONS (3)
  - DUPUYTREN'S CONTRACTURE OPERATION [None]
  - DRUG INEFFECTIVE [None]
  - PAROXYSMAL NOCTURNAL HAEMOGLOBINURIA [None]
